FAERS Safety Report 5427244-4 (Version None)
Quarter: 2007Q3

REPORT INFORMATION
  Report Type: 
  Country: None (occurrence: None)
  Receive Date: 20070828
  Receipt Date: 20070824
  Transmission Date: 20080115
  Serious: Yes (Death, Other)
  Sender: FDA-Public Use
  Company Number: JP-BRISTOL-MYERS SQUIBB COMPANY-13877741

PATIENT
  Age: 66 Year
  Sex: Male

DRUGS (9)
  1. IFOMIDE [Suspect]
     Indication: PROSTATE CANCER
     Route: 042
  2. METHOTREXATE [Suspect]
     Indication: TRANSITIONAL CELL CARCINOMA
     Dates: start: 20050401
  3. DOXORUBICIN HCL [Suspect]
     Indication: TRANSITIONAL CELL CARCINOMA
     Dates: start: 20050401
  4. CISPLATIN [Suspect]
     Indication: TRANSITIONAL CELL CARCINOMA
     Dates: start: 20050401
  5. VINBLASTINE SULFATE [Suspect]
     Indication: TRANSITIONAL CELL CARCINOMA
     Dates: start: 20050401
  6. LOXONIN [Suspect]
     Indication: PAIN IN EXTREMITY
     Route: 048
  7. AQUPLA [Suspect]
     Indication: PROSTATE CANCER
     Route: 042
  8. TAXOL [Concomitant]
     Indication: TRANSITIONAL CELL CARCINOMA
     Route: 041
  9. CYTOTEC [Concomitant]
     Dates: start: 20050701

REACTIONS (3)
  - DISEASE PROGRESSION [None]
  - PAIN IN EXTREMITY [None]
  - RENAL FAILURE ACUTE [None]
